FAERS Safety Report 10574771 (Version 1)
Quarter: 2014Q4

REPORT INFORMATION
  Report Type: Spontaneous
  Country: GB (occurrence: GB)
  Receive Date: 20141110
  Receipt Date: 20141110
  Transmission Date: 20150529
  Serious: Yes (Disabling)
  Sender: FDA-Public Use
  Company Number: ALCN2014GB006149

PATIENT
  Age: 72 Year
  Sex: Male
  Weight: 73.2 kg

DRUGS (4)
  1. TROPICAMIDE. [Suspect]
     Active Substance: TROPICAMIDE
     Indication: OPHTHALMOLOGICAL EXAMINATION
     Dosage: 1 GTT, UNK
     Route: 047
     Dates: end: 20141001
  2. TEMAZEPAM. [Concomitant]
     Active Substance: TEMAZEPAM
     Dosage: UNK
  3. LOSEC                                   /CAN/ [Concomitant]
     Dosage: UNK
  4. THYROXINE [Concomitant]
     Active Substance: LEVOTHYROXINE
     Dosage: UNK

REACTIONS (3)
  - Abnormal sensation in eye [Not Recovered/Not Resolved]
  - Burning sensation [Not Recovered/Not Resolved]
  - Photophobia [Not Recovered/Not Resolved]

NARRATIVE: CASE EVENT DATE: 20141001
